FAERS Safety Report 8722458 (Version 2)
Quarter: 2013Q4

REPORT INFORMATION
  Report Type: Spontaneous
  Country: GB (occurrence: GB)
  Receive Date: 20120814
  Receipt Date: 20131005
  Transmission Date: 20140711
  Serious: Yes (Disabling)
  Sender: FDA-Public Use
  Company Number: GB-TEVA-352336ISR

PATIENT
  Age: 64 Year
  Sex: Female
  Weight: 99.33 kg

DRUGS (7)
  1. BUMETANIDE [Suspect]
     Indication: FLUID RETENTION
     Dosage: SEVERAL YEARS USE. DOSE REDUCED TO ONCE A WEEK.
     Route: 048
  2. BUMETANIDE [Suspect]
     Route: 048
  3. FLECAINIDE [Concomitant]
  4. THYROXINE [Concomitant]
  5. BISOPROLOL [Concomitant]
  6. OMEPRAZOLE [Concomitant]
  7. ANALGESICS [Concomitant]

REACTIONS (1)
  - Atrial fibrillation [Not Recovered/Not Resolved]
